FAERS Safety Report 8535777-7 (Version None)
Quarter: 2012Q3

REPORT INFORMATION
  Report Type: 
  Country: None (occurrence: None)
  Receive Date: 20120725
  Receipt Date: 20120716
  Transmission Date: 20120928
  Serious: Yes (Hospitalization)
  Sender: FDA-Public Use
  Company Number: GB-JNJFOC-20120707422

PATIENT
  Age: 54 Year
  Sex: Female

DRUGS (2)
  1. IBUPROFEN [Suspect]
     Indication: ARTHRITIS
     Route: 048
  2. LANSOPRAZOLE [Concomitant]
     Route: 065

REACTIONS (2)
  - SMALL INTESTINAL OBSTRUCTION [None]
  - ILEAL STENOSIS [None]
